FAERS Safety Report 12686546 (Version 2)
Quarter: 2017Q1

REPORT INFORMATION
  Report Type: Spontaneous
  Country: FR (occurrence: FR)
  Receive Date: 20160825
  Receipt Date: 20170103
  Transmission Date: 20170428
  Serious: Yes (Hospitalization)
  Sender: FDA-Public Use
  Company Number: FR-MYLANLABS-2016M1034728

PATIENT

DRUGS (2)
  1. METHOTREXATE (METHOTREXATE SODIUM) [Suspect]
     Active Substance: METHOTREXATE SODIUM
     Indication: OSTEOSARCOMA
     Dosage: 16800 MG, ONCE
     Route: 042
     Dates: start: 20160801, end: 20160801
  2. FOLIC ACID. [Concomitant]
     Active Substance: FOLIC ACID
     Indication: PRODUCT USED FOR UNKNOWN INDICATION
     Dosage: UNK
     Dates: start: 20160801

REACTIONS (10)
  - Drug intolerance [Unknown]
  - Mucosal inflammation [Recovered/Resolved]
  - Vomiting [Unknown]
  - Febrile bone marrow aplasia [Recovered/Resolved]
  - Fatigue [Unknown]
  - Hepatocellular injury [Recovered/Resolved]
  - Immunosuppressant drug level increased [Recovered/Resolved]
  - Headache [Unknown]
  - Renal impairment [Recovered/Resolved]
  - Chills [Unknown]

NARRATIVE: CASE EVENT DATE: 20160801
